FAERS Safety Report 5731555-2 (Version None)
Quarter: 2008Q2

REPORT INFORMATION
  Report Type: 
  Country: None (occurrence: None)
  Receive Date: 20080506
  Receipt Date: 20080422
  Transmission Date: 20081010
  Serious: Yes (Hospitalization)
  Sender: FDA-Public Use
  Company Number: 2008000257

PATIENT
  Age: 61 Year
  Sex: Female
  Weight: 99.8 kg

DRUGS (6)
  1. ERLOTINIB (ERLOTINIB HCL) (TABLET) (ERLOTINIB HCL) [Suspect]
     Indication: TONSIL CANCER
     Dosage: 150 MG, QD, ORAL
     Route: 048
     Dates: start: 20071210, end: 20080112
  2. BEVACIZUMAB (INJECTION FOR INFUSION) [Suspect]
     Indication: TONSIL CANCER
     Dosage: 15 MG/KG, WEEKS 1 + 4 INTRAVENOUS
     Route: 042
     Dates: start: 20071022
  3. PACLITAXEL [Suspect]
     Indication: TONSIL CANCER
     Dosage: 50 MG/M2, WEEKLY  X 6W
     Dates: start: 20071022
  4. RADIATION [Suspect]
     Indication: TONSIL CANCER
     Dosage: 50 MG/M2, WEEKLY X 6W
     Dates: start: 20071210
  5. HYDROMORPHONE HCL [Concomitant]
  6. HYPERALIMENTATION [Concomitant]

REACTIONS (1)
  - OESOPHAGITIS [None]
